FAERS Safety Report 9030619 (Version 2)
Quarter: 2013Q1

REPORT INFORMATION
  Report Type: Spontaneous
  Country: US (occurrence: US)
  Receive Date: 20130123
  Receipt Date: 20130208
  Transmission Date: 20140127
  Serious: No
  Sender: FDA-Public Use
  Company Number: US-VERTEX PHARMACEUTICALS INC.-2013-000964

PATIENT
  Age: 65 None
  Sex: Male
  Weight: 95 kg

DRUGS (3)
  1. INCIVEK [Suspect]
     Indication: HEPATITIS C
     Dosage: 750 MG, TID
     Route: 048
     Dates: start: 20130120
  2. RIBAVIRIN [Suspect]
     Indication: HEPATITIS C
     Dosage: 1 DF, BID
     Route: 048
     Dates: start: 20130120
  3. PEGINTERFERON ALFA [Suspect]
     Indication: HEPATITIS C
     Dosage: UNK UNK, QW
     Route: 058
     Dates: start: 20130120

REACTIONS (5)
  - Somnolence [Not Recovered/Not Resolved]
  - Fatigue [Not Recovered/Not Resolved]
  - Urticaria papular [Not Recovered/Not Resolved]
  - Proctalgia [Recovered/Resolved]
  - Haemorrhoidal haemorrhage [Recovered/Resolved]
